FAERS Safety Report 23747148 (Version 3)
Quarter: 2024Q3

REPORT INFORMATION
  Report Type: Report from Study
  Country: US (occurrence: US)
  Receive Date: 20240416
  Receipt Date: 20240722
  Transmission Date: 20241017
  Serious: Yes (Hospitalization, Other)
  Sender: ROCHE
  Company Number: US-ROCHE-3539743

PATIENT
  Age: 51 Year
  Sex: Male
  Weight: 81.65 kg

DRUGS (11)
  1. OCREVUS [Suspect]
     Active Substance: OCRELIZUMAB
     Indication: Secondary progressive multiple sclerosis
     Route: 042
     Dates: start: 20240301, end: 20240315
  2. SILDENAFIL [Concomitant]
     Active Substance: SILDENAFIL
     Route: 048
  3. TRIPLE MAGNESIUM COMPLEX [Concomitant]
     Route: 048
     Dates: start: 2020
  4. CALCIUM WITH D3 [Concomitant]
     Dosage: 600 MG CALCIUM WITH 800 IU D3
     Route: 048
  5. MENAQUINONE 6 [Concomitant]
     Active Substance: MENAQUINONE 6
     Route: 048
  6. VITAMIN D3 [Concomitant]
     Active Substance: CHOLECALCIFEROL
     Route: 048
  7. VITAMIN B12 [Concomitant]
     Active Substance: CYANOCOBALAMIN
     Indication: Fatigue
     Route: 048
  8. IBANDRONATE SODIUM [Concomitant]
     Active Substance: IBANDRONATE SODIUM
     Route: 048
  9. TAMSULOSIN [Concomitant]
     Active Substance: TAMSULOSIN
     Indication: Hypertonic bladder
     Route: 048
  10. FINASTERIDE [Concomitant]
     Active Substance: FINASTERIDE
     Indication: Hypertonic bladder
     Route: 048
     Dates: start: 2010
  11. ARMODAFINIL [Concomitant]
     Active Substance: ARMODAFINIL
     Indication: Fatigue
     Route: 048

REACTIONS (8)
  - Herpes zoster [Recovering/Resolving]
  - Mental disorder [Not Recovered/Not Resolved]
  - Dizziness [Not Recovered/Not Resolved]
  - Fracture [Unknown]
  - Eye pain [Unknown]
  - Secretion discharge [Unknown]
  - Multiple sclerosis [Unknown]
  - Bell^s palsy [Not Recovered/Not Resolved]

NARRATIVE: CASE EVENT DATE: 20240308
